FAERS Safety Report 18609579 (Version 3)
Quarter: 2021Q2

REPORT INFORMATION
  Report Type: Spontaneous
  Country: CA (occurrence: CA)
  Receive Date: 20201214
  Receipt Date: 20210611
  Transmission Date: 20210717
  Serious: Yes (Other)
  Sender: FDA-Public Use
  Company Number: CA-CELLTRION INC.-2020CA033722

PATIENT

DRUGS (15)
  1. INFLECTRA [Suspect]
     Active Substance: INFLIXIMAB-DYYB
     Dosage: 5 MG/KG INDUCTION AT Q 0 , 2, 6 WEEK THEN EVERY 8 WEEKS)
     Route: 042
     Dates: start: 20210527
  2. ZOPICLONE [Concomitant]
     Active Substance: ZOPICLONE
     Dosage: UNK
     Route: 065
  3. INFLECTRA [Suspect]
     Active Substance: INFLIXIMAB-DYYB
     Dosage: 5 MG/KG INDUCTION AT Q 0 , 2, 6 WEEK THEN EVERY 8 WEEKS)
     Route: 042
     Dates: start: 20210329
  4. WELLBUTRIN [Concomitant]
     Active Substance: BUPROPION HYDROCHLORIDE
     Dosage: UNK
     Route: 065
  5. NEXIUM I.V. [Concomitant]
     Active Substance: ESOMEPRAZOLE SODIUM
     Dosage: UNK (UNKNOWN DOSE)
     Route: 065
  6. INFLECTRA [Suspect]
     Active Substance: INFLIXIMAB-DYYB
     Dosage: 5 MG/KG INDUCTION AT Q 0 , 2, 6 WEEK THEN EVERY 8 WEEKS)
     Route: 042
     Dates: start: 20201105
  7. INFLECTRA [Suspect]
     Active Substance: INFLIXIMAB-DYYB
     Dosage: 5 MG/KG INDUCTION AT Q 0 , 2, 6 WEEK THEN EVERY 8 WEEKS)
     Route: 042
     Dates: start: 20210130
  8. INFLECTRA [Suspect]
     Active Substance: INFLIXIMAB-DYYB
     Dosage: 5 MG/KG INDUCTION AT Q 0 , 2, 6 WEEK THEN EVERY 8 WEEKS)
     Route: 042
     Dates: start: 20201204
  9. FROVATRIPTAN. [Concomitant]
     Active Substance: FROVATRIPTAN
     Dosage: UNK
     Route: 065
  10. VENTOLINE [SALBUTAMOL] [Concomitant]
     Active Substance: ALBUTEROL SULFATE
     Dosage: UNK
     Route: 065
  11. CODEINE [Concomitant]
     Active Substance: CODEINE
     Dosage: UNK (UNKNOWN DOSE)
     Route: 065
  12. MIRTAZAPINE. [Concomitant]
     Active Substance: MIRTAZAPINE
     Dosage: UNK (UNKNOWN DOSE)
     Route: 065
  13. INFLECTRA [Suspect]
     Active Substance: INFLIXIMAB-DYYB
     Indication: CROHN^S DISEASE
     Dosage: 5 MG/KG (INDUCTION AT Q 0 , 2, 6 WEEK THEN EVERY 8 WEEKS)
     Route: 042
     Dates: start: 20201023
  14. NESIRITIDE [Concomitant]
     Active Substance: NESIRITIDE
     Dosage: UNK
     Route: 065
  15. SYMBICORT [Concomitant]
     Active Substance: BUDESONIDE\FORMOTEROL FUMARATE DIHYDRATE
     Dosage: UNK
     Route: 065

REACTIONS (2)
  - Condition aggravated [Unknown]
  - Weight increased [Unknown]

NARRATIVE: CASE EVENT DATE: 20201104
